FAERS Safety Report 6903313-4 (Version None)
Quarter: 2010Q3

REPORT INFORMATION
  Report Type: 
  Country: None (occurrence: None)
  Receive Date: 20100803
  Receipt Date: 20080915
  Transmission Date: 20110219
  Serious: No
  Sender: FDA-Public Use
  Company Number: US-PFIZER INC-2008071721

PATIENT
  Sex: Female
  Weight: 72.7 kg

DRUGS (9)
  1. LYRICA [Suspect]
     Indication: FIBROMYALGIA
     Dates: start: 20080101, end: 20080101
  2. LYRICA [Suspect]
     Indication: PAIN
  3. AMBIEN [Concomitant]
  4. ZEGERID [Concomitant]
  5. BENADRYL [Concomitant]
  6. VASOTEC [Concomitant]
  7. AXERT [Concomitant]
  8. ZOFRAN [Concomitant]
  9. MONTELUKAST SODIUM [Concomitant]

REACTIONS (2)
  - VISION BLURRED [None]
  - VISUAL ACUITY REDUCED [None]
